FAERS Safety Report 6677527-5 (Version None)
Quarter: 2010Q2

REPORT INFORMATION
  Report Type: 
  Country: None (occurrence: None)
  Receive Date: 20100412
  Receipt Date: 20100119
  Transmission Date: 20101027
  Serious: No
  Sender: FDA-Public Use
  Company Number: US-ALEXION-A201000058

PATIENT
  Sex: Male

DRUGS (7)
  1. SOLIRIS [Suspect]
     Indication: PAROXYSMAL NOCTURNAL HAEMOGLOBINURIA
     Dosage: 600 MG, QW
     Route: 042
     Dates: start: 20070503, end: 20070524
  2. SOLIRIS [Suspect]
     Dosage: 900 MG, Q2W
     Route: 042
     Dates: start: 20070531
  3. FOLIC ACID [Concomitant]
     Dosage: UNK
     Route: 048
  4. MORPHINE [Concomitant]
     Dosage: UNK
     Route: 048
  5. PREDNISOLONE [Concomitant]
     Dosage: UNK
     Route: 048
  6. ZOLOFT [Concomitant]
     Dosage: UNK
     Route: 048
  7. XANAX [Concomitant]
     Dosage: UNK
     Route: 048

REACTIONS (1)
  - FATIGUE [None]
